FAERS Safety Report 8231593 (Version 4)
Quarter: 2012Q4

REPORT INFORMATION
  Report Type: 
  Country: US (occurrence: US)
  Receive Date: 20111106
  Receipt Date: 20120912
  Transmission Date: 20130627
  Serious: Yes (Other)
  Sender: FDA-Public Use
  Company Number: US-AMGEN-USASP2011046001

PATIENT
  Age: 49 Year
  Sex: Male
  Weight: 88.52 kg

DRUGS (10)
  1. ENBREL [Suspect]
     Indication: RHEUMATOID ARTHRITIS
     Dosage: 50 mg, qwk
     Route: 058
     Dates: start: 201107
  2. ENBREL [Suspect]
     Dosage: 50 mg, qwk
     Route: 058
     Dates: start: 20110701, end: 20110905
  3. NORCO [Concomitant]
     Dosage: UNK UNK, prn
     Route: 048
  4. NORCO [Concomitant]
     Dosage: UNK, bid
     Route: 048
  5. OMEPRAZOLE [Concomitant]
     Dosage: 20 mg, qd
     Route: 048
  6. TRAMADOL HYDROCHLORIDE [Concomitant]
     Dosage: 50 mg, tid
     Route: 048
  7. FLEXERIL [Concomitant]
     Dosage: 10 mg, bid
     Route: 048
  8. FOLIC ACID [Concomitant]
     Dosage: 1 mg, qd
     Route: 048
  9. METHOTREXATE [Concomitant]
     Dosage: 12.5 mg, qwk
     Route: 048
  10. PLAQUENIL SULFATE [Concomitant]
     Dosage: 200 mg, bid
     Route: 048

REACTIONS (21)
  - Pericarditis [Recovered/Resolved]
  - Paraesthesia [Recovered/Resolved]
  - Pain [Recovered/Resolved]
  - Arthralgia [Recovered/Resolved]
  - Neck pain [Not Recovered/Not Resolved]
  - Musculoskeletal pain [Not Recovered/Not Resolved]
  - Hypokinesia [Not Recovered/Not Resolved]
  - Spinal osteoarthritis [Not Recovered/Not Resolved]
  - C-reactive protein increased [Not Recovered/Not Resolved]
  - Somnambulism [Unknown]
  - Fatigue [Unknown]
  - Gait disturbance [Not Recovered/Not Resolved]
  - Insomnia [Not Recovered/Not Resolved]
  - Weight increased [Not Recovered/Not Resolved]
  - Feeling abnormal [Not Recovered/Not Resolved]
  - Memory impairment [Not Recovered/Not Resolved]
  - Headache [Not Recovered/Not Resolved]
  - Rheumatoid arthritis [Not Recovered/Not Resolved]
  - Oedema peripheral [Not Recovered/Not Resolved]
  - Walking aid user [Not Recovered/Not Resolved]
  - Pyrexia [Recovered/Resolved]
